FAERS Safety Report 5482394-1 (Version None)
Quarter: 2007Q4

REPORT INFORMATION
  Report Type: 
  Country: None (occurrence: None)
  Receive Date: 20071011
  Receipt Date: 20071004
  Transmission Date: 20080405
  Serious: Yes (Hospitalization)
  Sender: FDA-Public Use
  Company Number: B0486818A

PATIENT
  Age: 83 Year
  Sex: Female

DRUGS (6)
  1. LANOXIN [Suspect]
     Indication: ATRIAL TACHYCARDIA
     Dosage: .25MG PER DAY
     Route: 048
     Dates: start: 20070511, end: 20070604
  2. AMIODARONE HYDROCHLORIDE [Suspect]
     Indication: ATRIAL FIBRILLATION
     Dosage: 200MG FOUR TIMES PER DAY
     Route: 048
     Dates: start: 20060101, end: 20070604
  3. FRUSEMIDE [Concomitant]
     Indication: DRUG USE FOR UNKNOWN INDICATION
     Route: 065
  4. HUMAN INSULIN [Concomitant]
     Indication: DIABETES MELLITUS
     Route: 058
  5. PRAMIPEXOLE [Concomitant]
     Indication: DRUG USE FOR UNKNOWN INDICATION
     Route: 065
  6. WARFARIN SODIUM [Concomitant]
     Indication: DRUG USE FOR UNKNOWN INDICATION
     Route: 048

REACTIONS (6)
  - BRADYCARDIA [None]
  - BUNDLE BRANCH BLOCK LEFT [None]
  - BUNDLE BRANCH BLOCK RIGHT [None]
  - ELECTROCARDIOGRAM QT PROLONGED [None]
  - SINUS RHYTHM [None]
  - THERAPEUTIC AGENT TOXICITY [None]
